FAERS Safety Report 11636373 (Version 1)
Quarter: 2015Q4

REPORT INFORMATION
  Report Type: Spontaneous
  Country: US (occurrence: None)
  Receive Date: 20151015
  Receipt Date: 20151015
  Transmission Date: 20160304
  Serious: Yes (Other)
  Sender: FDA-Public Use
  Company Number: None

PATIENT
  Age: 47 Year
  Sex: Female
  Weight: 73.94 kg

DRUGS (5)
  1. DICLOFENAC [Concomitant]
     Active Substance: DICLOFENAC
  2. PLAQUENIL [Concomitant]
     Active Substance: HYDROXYCHLOROQUINE SULFATE
  3. BIOTIN [Concomitant]
     Active Substance: BIOTIN
  4. CYMBALTA [Concomitant]
     Active Substance: DULOXETINE HYDROCHLORIDE
  5. INH [Suspect]
     Active Substance: ISONIAZID
     Indication: LATENT TUBERCULOSIS
     Dosage: TAKEN BY MOUTH
     Route: 055
     Dates: start: 201504, end: 2015

REACTIONS (5)
  - Eyelid oedema [None]
  - Lip swelling [None]
  - Disorientation [None]
  - Urticaria [None]
  - Confusional state [None]

NARRATIVE: CASE EVENT DATE: 20150810
